FAERS Safety Report 5118713-5 (Version None)
Quarter: 2006Q3

REPORT INFORMATION
  Report Type: 
  Country: None (occurrence: None)
  Receive Date: 20060927
  Receipt Date: 20060920
  Transmission Date: 20061208
  Serious: Yes (Other)
  Sender: FDA-Public Use
  Company Number: 2006113542

PATIENT
  Age: 61 Year
  Sex: Female

DRUGS (3)
  1. SINEQUAN [Suspect]
     Indication: PAIN
     Dosage: 20 MG (10 MG, 2 IN 1 D), ORAL
     Route: 048
  2. ZOCOR [Concomitant]
  3. ANALGESICS (ANALGESICS) [Concomitant]

REACTIONS (1)
  - BLOOD CHOLESTEROL INCREASED [None]
